FAERS Safety Report 23167414 (Version 1)
Quarter: 2023Q4

REPORT INFORMATION
  Report Type: Spontaneous
  Country: US (occurrence: US)
  Receive Date: 20231109
  Receipt Date: 20231109
  Transmission Date: 20240110
  Serious: No
  Sender: FDA-Public Use
  Company Number: US-SA-SAC20231101000272

PATIENT
  Age: 77 Year
  Sex: Female
  Weight: 85 kg

DRUGS (2)
  1. DUPIXENT [Suspect]
     Active Substance: DUPILUMAB
     Indication: Nasal polyps
     Dosage: 300 MG, QOW
     Route: 058
     Dates: start: 20230116
  2. NUCALA [Concomitant]
     Active Substance: MEPOLIZUMAB

REACTIONS (2)
  - Eosinophil count abnormal [Recovering/Resolving]
  - Quality of life decreased [Recovering/Resolving]

NARRATIVE: CASE EVENT DATE: 20230101
